FAERS Safety Report 10158913 (Version 1)
Quarter: 2014Q2

REPORT INFORMATION
  Report Type: Spontaneous
  Country: US (occurrence: US)
  Receive Date: 20140508
  Receipt Date: 20140508
  Transmission Date: 20141212
  Serious: No
  Sender: FDA-Public Use
  Company Number: US-BIOGENIDEC-2014BI039509

PATIENT
  Sex: Male

DRUGS (5)
  1. TECFIDERA [Suspect]
     Indication: MULTIPLE SCLEROSIS
     Route: 048
     Dates: start: 20130816, end: 20140205
  2. TYSABRI [Concomitant]
     Indication: MULTIPLE SCLEROSIS
     Route: 042
     Dates: start: 20090430, end: 20091116
  3. TYSABRI [Concomitant]
     Indication: MULTIPLE SCLEROSIS
     Route: 042
  4. AVONEX [Concomitant]
     Indication: MULTIPLE SCLEROSIS
     Route: 030
     Dates: start: 20040409, end: 20070307
  5. AVONEX [Concomitant]
     Indication: MULTIPLE SCLEROSIS
     Route: 030

REACTIONS (2)
  - Muscular weakness [Not Recovered/Not Resolved]
  - Mobility decreased [Unknown]
